FAERS Safety Report 6295551-1 (Version None)
Quarter: 2009Q3

REPORT INFORMATION
  Report Type: 
  Country: None (occurrence: None)
  Receive Date: 20090731
  Receipt Date: 20070904
  Transmission Date: 20100115
  Serious: Yes (Death)
  Sender: FDA-Public Use
  Company Number: 2009US002885

PATIENT
  Age: 37 Year
  Sex: Male

DRUGS (5)
  1. AMBISOME [Suspect]
     Indication: HISTOPLASMOSIS DISSEMINATED
     Dosage: 400 MG, UID/QD, IV NOS; 40 MG, UID/QD, IV NOS
     Route: 042
  2. AMPHOTERICIN B [Suspect]
     Indication: HISTOPLASMOSIS DISSEMINATED
  3. RED BLOOD CELLS [Concomitant]
  4. PIPERACILLIN W/TAZOBACTAM (PIPERACILLIN, TAZOBACTAM) [Concomitant]
  5. LEVOFLOXACIN [Concomitant]

REACTIONS (10)
  - ABDOMINAL PAIN [None]
  - BACK PAIN [None]
  - CARDIOPULMONARY FAILURE [None]
  - CHILLS [None]
  - DYSPNOEA [None]
  - INCORRECT DOSE ADMINISTERED [None]
  - INFUSION RELATED REACTION [None]
  - RASH MACULO-PAPULAR [None]
  - WHEEZING [None]
  - WRONG DRUG ADMINISTERED [None]
